FAERS Safety Report 9010706 (Version 3)
Quarter: 2013Q1

REPORT INFORMATION
  Report Type: Report from Study
  Country: US (occurrence: US)
  Receive Date: 20130111
  Receipt Date: 20130325
  Transmission Date: 20140127
  Serious: Yes (Death, Hospitalization)
  Sender: FDA-Public Use
  Company Number: US-ACTELION-A-US2013-77138

PATIENT
  Age: 80 Year
  Sex: Female

DRUGS (4)
  1. VELETRI [Suspect]
     Indication: PULMONARY ARTERIAL HYPERTENSION
     Dosage: 51 UNK, UNK
     Route: 042
     Dates: start: 20101021
  2. TRACLEER [Suspect]
     Indication: PULMONARY ARTERIAL HYPERTENSION
     Dosage: UNK
     Route: 048
  3. ADCIRCA [Concomitant]
  4. COUMADIN [Concomitant]

REACTIONS (2)
  - Death [Fatal]
  - Gastric haemorrhage [Unknown]
